FAERS Safety Report 6821770-9 (Version None)
Quarter: 2010Q3

REPORT INFORMATION
  Report Type: 
  Country: None (occurrence: None)
  Receive Date: 20100707
  Receipt Date: 20100707
  Transmission Date: 20110219
  Serious: No
  Sender: FDA-Public Use
  Company Number: None

PATIENT

DRUGS (2)
  1. FERROUS SULFATE 7.5 MG/0.5 ML MAJOR/ ATLANTIC BIOLOGICALS [Suspect]
     Indication: ANAEMIA
     Dates: start: 20100610, end: 20100615
  2. FERROUS SULFATE 12.5 MG/0.5 ML MAJOR/ ATLANTIC BIOLOGICALS [Suspect]

REACTIONS (4)
  - DRUG DISPENSING ERROR [None]
  - MEDICATION ERROR [None]
  - PRODUCT FORMULATION ISSUE [None]
  - PRODUCT LABEL ISSUE [None]
